FAERS Safety Report 5650634-1 (Version None)
Quarter: 2008Q1

REPORT INFORMATION
  Report Type: 
  Country: None (occurrence: None)
  Receive Date: 20080305
  Receipt Date: 20080221
  Transmission Date: 20080703
  Serious: Yes (Disabling, Other)
  Sender: FDA-Public Use
  Company Number: PHBS2008BR02618

PATIENT
  Age: 68 Year
  Sex: Female
  Weight: 69 kg

DRUGS (4)
  1. ZELMAC [Suspect]
     Indication: CONSTIPATION
     Dosage: UNK, UNK
  2. BROMAZEPAM [Concomitant]
     Indication: ABDOMINAL PAIN
     Dosage: 0.5 TAB/DAY
     Route: 048
     Dates: start: 19920101
  3. BROMAZEPAM [Concomitant]
     Dosage: 2 TO 3 TAB/DAY
     Route: 048
  4. METFORMIN HCL [Concomitant]
     Indication: DIABETES MELLITUS
     Dosage: 1 DF, BID
     Dates: start: 20040101

REACTIONS (2)
  - ABDOMINAL PAIN [None]
  - DIARRHOEA [None]
